FAERS Safety Report 18821817 (Version 1)
Quarter: 2021Q1

REPORT INFORMATION
  Report Type: Spontaneous
  Country: US (occurrence: US)
  Receive Date: 20210202
  Receipt Date: 20210202
  Transmission Date: 20210419
  Serious: Yes (Death)
  Sender: FDA-Public Use
  Company Number: None

PATIENT
  Age: 75 Year
  Sex: Male

DRUGS (22)
  1. ENTACAPONE. [Concomitant]
     Active Substance: ENTACAPONE
  2. TRAZODONE [Concomitant]
     Active Substance: TRAZODONE HYDROCHLORIDE
  3. GLYCOPYRROL [Concomitant]
  4. KETOROLAC [Concomitant]
     Active Substance: KETOROLAC TROMETHAMINE
  5. PANTOPRAZOLE [Concomitant]
     Active Substance: PANTOPRAZOLE
  6. FINASTERIDE. [Concomitant]
     Active Substance: FINASTERIDE
  7. NYSTATIN. [Concomitant]
     Active Substance: NYSTATIN
  8. WIXELA INHUB [Concomitant]
     Active Substance: FLUTICASONE PROPIONATE\SALMETEROL XINAFOATE
  9. NUPLAZID [Concomitant]
     Active Substance: PIMAVANSERIN TARTRATE
  10. METHUMAZOLE [Concomitant]
  11. TAMSULOSIN [Concomitant]
     Active Substance: TAMSULOSIN
  12. ESBRIET [Suspect]
     Active Substance: PIRFENIDONE
     Indication: IDIOPATHIC PULMONARY FIBROSIS
     Route: 048
     Dates: end: 20210124
  13. AMOX/K CLAV [Concomitant]
     Active Substance: AMOXICILLIN\CLAVULANATE POTASSIUM
  14. BUPROPION SR [Concomitant]
     Active Substance: BUPROPION HYDROCHLORIDE
  15. IPRATROPIUM/SOL ALBUTER [Concomitant]
  16. PREDNISONE. [Concomitant]
     Active Substance: PREDNISONE
  17. AMOX?POT CLAV ER [Concomitant]
  18. CARB/LEVO [Concomitant]
     Active Substance: CARBIDOPA\LEVODOPA
  19. ASPIRIN EC [Concomitant]
     Active Substance: ASPIRIN
  20. BENZONATATE. [Concomitant]
     Active Substance: BENZONATATE
  21. MYRBETRIQ [Concomitant]
     Active Substance: MIRABEGRON
  22. TRELEGY ELLIPT [Concomitant]

REACTIONS (1)
  - Death [None]

NARRATIVE: CASE EVENT DATE: 20210124
